FAERS Safety Report 8601149 (Version 2)
Quarter: 2013Q1

REPORT INFORMATION
  Report Type: Report from Study
  Country: US (occurrence: US)
  Receive Date: 20120606
  Receipt Date: 20130319
  Transmission Date: 20140127
  Serious: Yes (Death, Other)
  Sender: FDA-Public Use
  Company Number: US-ROCHE-1072012

PATIENT
  Sex: 0

DRUGS (4)
  1. BEVACIZUMAB [Suspect]
     Indication: GASTROOESOPHAGEAL CANCER
     Route: 065
  2. IRINOTECAN [Suspect]
     Indication: GASTROOESOPHAGEAL CANCER
     Route: 065
  3. CISPLATIN [Suspect]
     Indication: GASTROOESOPHAGEAL CANCER
     Route: 065
  4. DOCETAXEL [Suspect]
     Indication: GASTROOESOPHAGEAL CANCER
     Route: 065

REACTIONS (11)
  - Oesophageal haemorrhage [Fatal]
  - Sudden death [Fatal]
  - Neutropenia [Unknown]
  - Thrombocytopenia [Unknown]
  - Diarrhoea [Unknown]
  - Fatigue [Unknown]
  - Vomiting [Unknown]
  - Infection [Unknown]
  - Decreased appetite [Unknown]
  - Embolism [Unknown]
  - Hypertension [Unknown]
